APPROVED DRUG PRODUCT: NUTRACORT
Active Ingredient: HYDROCORTISONE
Strength: 2.5%
Dosage Form/Route: LOTION;TOPICAL
Application: A087644 | Product #001
Applicant: DOW PHARMACEUTICAL SCIENCES
Approved: Aug 24, 1982 | RLD: No | RS: No | Type: DISCN